FAERS Safety Report 7772198-9 (Version None)
Quarter: 2011Q3

REPORT INFORMATION
  Report Type: 
  Country: None (occurrence: None)
  Receive Date: 20110922
  Receipt Date: 20100910
  Transmission Date: 20111222
  Serious: Yes (Hospitalization)
  Sender: FDA-Public Use
  Company Number: US-ASTRAZENECA-2010SE42787

PATIENT
  Age: 60 Year
  Sex: Male

DRUGS (3)
  1. LITHIUM [Concomitant]
     Route: 048
  2. SEROQUEL [Suspect]
     Route: 048
  3. SEROQUEL [Suspect]
     Route: 048

REACTIONS (2)
  - TACHYCARDIA [None]
  - DRUG DOSE OMISSION [None]
